FAERS Safety Report 5049764-7 (Version None)
Quarter: 2006Q3

REPORT INFORMATION
  Report Type: 
  Country: None (occurrence: None)
  Receive Date: 20060712
  Receipt Date: 20060704
  Transmission Date: 20061208
  Serious: Yes (Other)
  Sender: FDA-Public Use
  Company Number: JP-SANOFI-SYNTHELABO-A01200605080

PATIENT
  Age: 62 Year
  Sex: Female

DRUGS (1)
  1. MYSLEE [Suspect]
     Indication: INSOMNIA
     Dosage: 10 MG
     Route: 048
     Dates: start: 20060531, end: 20060531

REACTIONS (3)
  - DELIRIUM [None]
  - DELUSION [None]
  - HALLUCINATION [None]
